FAERS Safety Report 13292916 (Version 1)
Quarter: 2017Q1

REPORT INFORMATION
  Report Type: Spontaneous
  Country: US (occurrence: US)
  Receive Date: 20170303
  Receipt Date: 20170303
  Transmission Date: 20170428
  Serious: Yes (Other)
  Sender: FDA-Public Use
  Company Number: US-ASTRAZENECA-2017SE21120

PATIENT
  Age: 716 Month
  Sex: Female

DRUGS (1)
  1. ARIMIDEX [Suspect]
     Active Substance: ANASTROZOLE
     Dosage: UNKNOWN DOSE
     Route: 048

REACTIONS (1)
  - Breast cancer recurrent [Unknown]

NARRATIVE: CASE EVENT DATE: 200902
